FAERS Safety Report 20056243 (Version 1)
Quarter: 2021Q4

REPORT INFORMATION
  Report Type: Spontaneous
  Country: US (occurrence: US)
  Receive Date: 20211111
  Receipt Date: 20211111
  Transmission Date: 20220303
  Serious: No
  Sender: FDA-Public Use
  Company Number: US-TEVA-2021-US-1968370

PATIENT
  Age: 44 Year
  Sex: Female
  Weight: 82.55 kg

DRUGS (2)
  1. TRISENOX [Suspect]
     Active Substance: ARSENIC TRIOXIDE
     Indication: Acute promyelocytic leukaemia
     Route: 065
     Dates: start: 20210531
  2. TRETINOIN [Concomitant]
     Active Substance: TRETINOIN
     Dates: start: 20210531

REACTIONS (1)
  - Ear discomfort [Not Recovered/Not Resolved]

NARRATIVE: CASE EVENT DATE: 20210601
